FAERS Safety Report 16633580 (Version 1)
Quarter: 2019Q3

REPORT INFORMATION
  Report Type: Spontaneous
  Country: US (occurrence: US)
  Receive Date: 20190725
  Receipt Date: 20190725
  Transmission Date: 20191004
  Serious: Yes (Hospitalization, Disabling)
  Sender: FDA-Public Use
  Company Number: None

PATIENT
  Age: 41 Year
  Sex: Female
  Weight: 59.4 kg

DRUGS (1)
  1. LEVOFLOXACIN. [Suspect]
     Active Substance: LEVOFLOXACIN
     Indication: SINUSITIS
     Dosage: ?          QUANTITY:1 TABLET(S);?
     Route: 048
     Dates: start: 20180320, end: 20180324

REACTIONS (28)
  - Nausea [None]
  - Myalgia [None]
  - Loss of personal independence in daily activities [None]
  - Headache [None]
  - Panic attack [None]
  - Gait disturbance [None]
  - Muscular weakness [None]
  - Weight decreased [None]
  - Fatigue [None]
  - Paraesthesia [None]
  - Balance disorder [None]
  - Dyspnoea [None]
  - Guillain-Barre syndrome [None]
  - Arthralgia [None]
  - Insomnia [None]
  - Heart rate irregular [None]
  - Fat tissue increased [None]
  - Joint swelling [None]
  - Dysarthria [None]
  - Dry mouth [None]
  - Cognitive disorder [None]
  - Hyperacusis [None]
  - Tinnitus [None]
  - Feeling abnormal [None]
  - Depressed mood [None]
  - Suicidal ideation [None]
  - Vertigo [None]
  - Palpitations [None]

NARRATIVE: CASE EVENT DATE: 20180320
